FAERS Safety Report 9289875 (Version 2)
Quarter: 2013Q2

REPORT INFORMATION
  Report Type: Report from Study
  Country: CA (occurrence: CA)
  Receive Date: 20130515
  Receipt Date: 20130613
  Transmission Date: 20140414
  Serious: Yes (Death, Other)
  Sender: FDA-Public Use
  Company Number: PHHY2013CA047945

PATIENT
  Age: 74 Year
  Sex: Female

DRUGS (3)
  1. ACLASTA [Suspect]
     Indication: OSTEOPOROSIS
     Dosage: UNK
     Route: 042
     Dates: start: 20100730
  2. ACLASTA [Suspect]
     Dosage: UNK
     Route: 042
     Dates: start: 20110810
  3. ACLASTA [Suspect]
     Dosage: UNK
     Route: 042
     Dates: start: 20120810

REACTIONS (3)
  - Death [Fatal]
  - Cardiac valve disease [Unknown]
  - Pneumonia [Unknown]
